FAERS Safety Report 10806518 (Version 1)
Quarter: 2015Q1

REPORT INFORMATION
  Report Type: Report from Study
  Country: US (occurrence: US)
  Receive Date: 20150217
  Receipt Date: 20150217
  Transmission Date: 20150721
  Serious: No
  Sender: FDA-Public Use
  Company Number: US-ABBVIE-14K-163-1239396-00

PATIENT
  Age: 30 Year
  Sex: Female

DRUGS (1)
  1. HUMIRA [Suspect]
     Active Substance: ADALIMUMAB
     Indication: CROHN^S DISEASE
     Dates: start: 201206

REACTIONS (5)
  - Pain [Unknown]
  - Migraine [Recovered/Resolved]
  - Musculoskeletal stiffness [Unknown]
  - Fibromyalgia [Unknown]
  - Headache [Unknown]

NARRATIVE: CASE EVENT DATE: 201402
